FAERS Safety Report 13581289 (Version 2)
Quarter: 2017Q2

REPORT INFORMATION
  Report Type: Report from Study
  Country: CA (occurrence: CA)
  Receive Date: 20170525
  Receipt Date: 20170531
  Transmission Date: 20170830
  Serious: Yes (Other)
  Sender: FDA-Public Use
  Company Number: CA-AMGEN-CANSL2017077899

PATIENT
  Age: 82 Year
  Sex: Female

DRUGS (8)
  1. ELIQUIS [Concomitant]
     Active Substance: APIXABAN
  2. VITALUX [Concomitant]
     Active Substance: MINERALS\VITAMINS
  3. MAGNESIUM [Concomitant]
     Active Substance: MAGNESIUM
  4. DIGOXIN. [Concomitant]
     Active Substance: DIGOXIN
  5. PROLIA [Suspect]
     Active Substance: DENOSUMAB
     Indication: PRODUCT USED FOR UNKNOWN INDICATION
     Dosage: UNK
     Route: 065
     Dates: start: 20100909
  6. VITAMIN D [Concomitant]
     Active Substance: CHOLECALCIFEROL
     Dosage: 2000 IU, UNK
  7. CRESTOR [Concomitant]
     Active Substance: ROSUVASTATIN CALCIUM
     Dosage: 20 MG, QD
  8. FUROSEMIDE. [Concomitant]
     Active Substance: FUROSEMIDE
     Dosage: 20 MG, UNK

REACTIONS (4)
  - Hip fracture [Unknown]
  - Rib fracture [Unknown]
  - Pelvic fracture [Unknown]
  - Calcinosis [Unknown]

NARRATIVE: CASE EVENT DATE: 2014
